FAERS Safety Report 7527508-4 (Version None)
Quarter: 2011Q2

REPORT INFORMATION
  Report Type: 
  Country: None (occurrence: None)
  Receive Date: 20110607
  Receipt Date: 20110105
  Transmission Date: 20111010
  Serious: Yes (Other)
  Sender: FDA-Public Use
  Company Number: US-BAYER-201026183NA

PATIENT
  Age: 20 Year
  Sex: Female
  Weight: 68.027 kg

DRUGS (5)
  1. YAZ [Suspect]
     Indication: ACNE
  2. LOESTRIN 1.5/30 [Concomitant]
     Dosage: UNK
     Dates: start: 20091115, end: 20100601
  3. YASMIN [Suspect]
     Indication: PRODUCT USED FOR UNKNOWN INDICATION
     Dosage: UNK
     Dates: start: 20080801, end: 20090801
  4. YAZ [Suspect]
     Indication: MENSTRUATION IRREGULAR
  5. YAZ [Suspect]
     Indication: ORAL CONTRACEPTION
     Dosage: UNK UNK, QD
     Route: 048
     Dates: start: 20080801, end: 20090801

REACTIONS (6)
  - NAUSEA [None]
  - CHOLECYSTITIS CHRONIC [None]
  - VOMITING [None]
  - CHOLELITHIASIS [None]
  - PAIN [None]
  - PROCEDURAL PAIN [None]
